FAERS Safety Report 23637216 (Version 1)
Quarter: 2024Q1

REPORT INFORMATION
  Report Type: Spontaneous
  Country: CA (occurrence: CA)
  Receive Date: 20240315
  Receipt Date: 20240315
  Transmission Date: 20240410
  Serious: Yes (Other)
  Sender: FDA-Public Use
  Company Number: CA-JNJFOC-20240324518

PATIENT
  Age: 11 Year
  Sex: Female

DRUGS (4)
  1. REMICADE [Suspect]
     Active Substance: INFLIXIMAB
     Indication: Colitis ulcerative
     Dosage: WEEKS 0, 2 AND 6, FOLLOWED BY RESUMPTION OF 400 MG EVERY 4 WEEKS
     Route: 041
  2. VEDOLIZUMAB [Suspect]
     Active Substance: VEDOLIZUMAB
     Indication: Colitis ulcerative
     Route: 065
  3. METHOTREXATE [Suspect]
     Active Substance: METHOTREXATE
     Indication: Colitis ulcerative
     Dosage: 1 DAILY
     Route: 048
     Dates: start: 20220908
  4. MESALAMINE [Suspect]
     Active Substance: MESALAMINE
     Indication: Colitis ulcerative
     Route: 065

REACTIONS (10)
  - Syncope [Unknown]
  - Colitis ulcerative [Unknown]
  - Decreased appetite [Unknown]
  - Insomnia [Unknown]
  - Nasopharyngitis [Unknown]
  - Musculoskeletal stiffness [Unknown]
  - Infusion related reaction [Unknown]
  - Drug specific antibody present [Unknown]
  - Drug level decreased [Unknown]
  - Off label use [Unknown]
